FAERS Safety Report 23793197 (Version 4)
Quarter: 2025Q2

REPORT INFORMATION
  Report Type: Spontaneous
  Country: US (occurrence: US)
  Receive Date: 20240429
  Receipt Date: 20250417
  Transmission Date: 20250717
  Serious: No
  Sender: ABBVIE
  Company Number: US-ABBVIE-5737165

PATIENT
  Age: 62 Year
  Sex: Female
  Weight: 60 kg

DRUGS (3)
  1. BYSTOLIC [Suspect]
     Active Substance: NEBIVOLOL HYDROCHLORIDE
     Indication: Ventricular extrasystoles
     Dosage: 5 MILLIGRAM
     Route: 048
     Dates: start: 2008, end: 202203
  2. BYSTOLIC [Suspect]
     Active Substance: NEBIVOLOL HYDROCHLORIDE
     Indication: Ventricular extrasystoles
     Dosage: 5 MILLIGRAM
     Route: 048
     Dates: start: 202203
  3. NEBIVOLOL [Suspect]
     Active Substance: NEBIVOLOL
     Indication: Ventricular extrasystoles
     Dosage: 5 MILLIGRAM
     Route: 048
     Dates: start: 202203, end: 202203

REACTIONS (6)
  - Neuropathy peripheral [Recovered/Resolved]
  - Burning sensation [Recovered/Resolved]
  - Drug ineffective [Not Recovered/Not Resolved]
  - Neuropathy peripheral [Not Recovered/Not Resolved]
  - Pain in extremity [Recovered/Resolved]
  - Product container issue [Not Recovered/Not Resolved]

NARRATIVE: CASE EVENT DATE: 20220301
